FAERS Safety Report 5277149-7 (Version None)
Quarter: 2007Q1

REPORT INFORMATION
  Report Type: 
  Country: None (occurrence: None)
  Receive Date: 20061213
  Receipt Date: 20050110
  Transmission Date: 20070707
  Serious: No
  Sender: FDA-Public Use
  Company Number: 2004UW21131

PATIENT
  Age: 49 Year
  Sex: Female
  Weight: 113.3993 kg

DRUGS (5)
  1. SEROQUEL [Suspect]
     Indication: MAJOR DEPRESSION
     Dosage: 400 MG DAILY PO
     Route: 048
     Dates: start: 20041004, end: 20041101
  2. SEROQUEL [Suspect]
     Indication: POST-TRAUMATIC STRESS DISORDER
     Dosage: 400 MG DAILY PO
     Route: 048
     Dates: start: 20041004, end: 20041101
  3. FLUVOXAMINE MALEATE [Concomitant]
  4. TRAZODONE HCL [Concomitant]
  5. LAMICTAL [Concomitant]

REACTIONS (2)
  - CONVULSION [None]
  - HALLUCINATION [None]
